FAERS Safety Report 13145075 (Version 1)
Quarter: 2017Q1

REPORT INFORMATION
  Report Type: Spontaneous
  Country: JP (occurrence: JP)
  Receive Date: 20170124
  Receipt Date: 20170124
  Transmission Date: 20170428
  Serious: Yes (Death)
  Sender: FDA-Public Use
  Company Number: JP-MALLINCKRODT-T201502595

PATIENT
  Age: 57 Year
  Sex: Female

DRUGS (9)
  1. SENNOSIDE [Concomitant]
     Active Substance: SENNOSIDES
     Dosage: 48 MG
     Route: 048
  2. PARIET [Concomitant]
     Active Substance: RABEPRAZOLE SODIUM
     Dosage: 10 MG
     Route: 048
  3. LYRICA [Concomitant]
     Active Substance: PREGABALIN
     Indication: ANALGESIC THERAPY
     Dosage: 150 MG
     Route: 048
     Dates: end: 20150114
  4. OXYCONTIN [Concomitant]
     Active Substance: OXYCODONE HYDROCHLORIDE
     Indication: ANALGESIC THERAPY
     Dosage: 120 MG
     Route: 048
  5. BLOPRESS [Concomitant]
     Active Substance: CANDESARTAN CILEXETIL
     Dosage: 8 MG
     Route: 048
  6. METHADONE [Suspect]
     Active Substance: METHADONE HYDROCHLORIDE
     Indication: CANCER PAIN
     Dosage: 10 MG; 30 MG DAILY DOSE
     Route: 048
     Dates: start: 20150110, end: 20150116
  7. MOSAPRIDE [Concomitant]
     Active Substance: MOSAPRIDE
     Dosage: 15 MG
     Route: 048
  8. METHADONE [Suspect]
     Active Substance: METHADONE HYDROCHLORIDE
     Dosage: 20 MG; 40 MG DAILY DOSE
     Route: 048
     Dates: start: 20150117, end: 20150517
  9. OXINORM [Concomitant]
     Active Substance: OXYCODONE HYDROCHLORIDE
     Dosage: 10 MG, PRN
     Route: 048
     Dates: start: 20150109

REACTIONS (4)
  - Liposarcoma recurrent [Fatal]
  - Somnolence [Recovered/Resolved]
  - Nausea [Recovered/Resolved]
  - Vomiting [Recovered/Resolved]

NARRATIVE: CASE EVENT DATE: 20150111
